FAERS Safety Report 8007730-3 (Version None)
Quarter: 2011Q4

REPORT INFORMATION
  Report Type: 
  Country: None (occurrence: None)
  Receive Date: 20111227
  Receipt Date: 20111103
  Transmission Date: 20120403
  Serious: No
  Sender: FDA-Public Use
  Company Number: US-ABBOTT-11P-163-0872747-00

PATIENT
  Age: 70 Year
  Sex: Male
  Weight: 68.1 kg

DRUGS (1)
  1. LUPRON DEPOT [Suspect]
     Indication: PROSTATE CANCER

REACTIONS (7)
  - DYSGEUSIA [None]
  - ASTHENIA [None]
  - URINE ODOUR ABNORMAL [None]
  - NOCTURIA [None]
  - HEADACHE [None]
  - CHEST DISCOMFORT [None]
  - PAROSMIA [None]
